FAERS Safety Report 7603980-6 (Version None)
Quarter: 2011Q3

REPORT INFORMATION
  Report Type: 
  Country: None (occurrence: None)
  Receive Date: 20110712
  Receipt Date: 20110706
  Transmission Date: 20111222
  Serious: Yes (Death)
  Sender: FDA-Public Use
  Company Number: US-ACTELION-A-US2011-51101

PATIENT

DRUGS (3)
  1. CALCIUM CHANNEL BLOCKERS [Concomitant]
  2. VIAGRA [Concomitant]
  3. TRACLEER [Suspect]
     Indication: PULMONARY ARTERIAL HYPERTENSION
     Dosage: UNK
     Route: 048
     Dates: start: 20100713

REACTIONS (3)
  - CHRONIC RESPIRATORY FAILURE [None]
  - CARDIOMYOPATHY [None]
  - CHRONIC OBSTRUCTIVE PULMONARY DISEASE [None]
